FAERS Safety Report 14667126 (Version 1)
Quarter: 2018Q1

REPORT INFORMATION
  Report Type: Report from Study
  Country: JP (occurrence: JP)
  Receive Date: 20180322
  Receipt Date: 20180322
  Transmission Date: 20180509
  Serious: Yes (Other)
  Sender: FDA-Public Use
  Company Number: JP-ROCHE-2093851

PATIENT

DRUGS (1)
  1. RITUXIMAB. [Suspect]
     Active Substance: RITUXIMAB
     Indication: NEPHROTIC SYNDROME
     Dosage: FORM STRENGTH- 10 MG/ML
     Route: 041

REACTIONS (3)
  - Agranulocytosis [Unknown]
  - Infusion related reaction [Unknown]
  - Infection [Unknown]
